FAERS Safety Report 25117375 (Version 1)
Quarter: 2025Q1

REPORT INFORMATION
  Report Type: Spontaneous
  Country: US (occurrence: US)
  Receive Date: 20250325
  Receipt Date: 20250325
  Transmission Date: 20250409
  Serious: Yes (Hospitalization)
  Sender: ROCHE
  Company Number: US-ROCHE-10000233773

PATIENT
  Age: 73 Year
  Sex: Male

DRUGS (1)
  1. ACTEMRA ACTPEN [Suspect]
     Active Substance: TOCILIZUMAB
     Indication: Rheumatoid arthritis
     Route: 058

REACTIONS (6)
  - Fatigue [Unknown]
  - Night sweats [Unknown]
  - Eye pain [Unknown]
  - Headache [Unknown]
  - Arthralgia [Unknown]
  - Insomnia [Unknown]
